FAERS Safety Report 4632962-1 (Version None)
Quarter: 2005Q2

REPORT INFORMATION
  Report Type: 
  Country: None (occurrence: None)
  Receive Date: 20050412
  Receipt Date: 20050404
  Transmission Date: 20051028
  Serious: Yes (Hospitalization)
  Sender: FDA-Public Use
  Company Number: FR-MERCK-0504FRA00015

PATIENT
  Age: 77 Year
  Sex: Male

DRUGS (7)
  1. ZETIA [Suspect]
     Indication: HYPERCHOLESTEROLAEMIA
     Route: 048
     Dates: start: 20050221, end: 20050302
  2. ASPIRIN LYSINE [Concomitant]
     Indication: THROMBOSIS PROPHYLAXIS
     Route: 048
  3. MOLSIDOMINE [Concomitant]
     Indication: CORONARY ARTERY DISEASE
     Route: 048
  4. LANSOPRAZOLE [Concomitant]
     Indication: PROPHYLAXIS AGAINST GASTROINTESTINAL ULCER
     Route: 048
  5. ATORVASTATIN CALCIUM [Concomitant]
     Indication: HYPERCHOLESTEROLAEMIA
     Route: 048
  6. SOTALOL HYDROCHLORIDE [Concomitant]
     Route: 048
  7. ACENOCOUMAROL [Concomitant]
     Route: 048

REACTIONS (4)
  - CONSTIPATION [None]
  - FLATULENCE [None]
  - NAUSEA [None]
  - VOMITING [None]
